FAERS Safety Report 20223793 (Version 5)
Quarter: 2022Q2

REPORT INFORMATION
  Report Type: Spontaneous
  Country: CA (occurrence: CA)
  Receive Date: 20211223
  Receipt Date: 20220427
  Transmission Date: 20220721
  Serious: Yes (Death, Other)
  Sender: FDA-Public Use
  Company Number: CA-PFIZER INC-202101825888

PATIENT
  Age: 75 Year
  Sex: Female

DRUGS (4)
  1. RUXIENCE [Suspect]
     Active Substance: RITUXIMAB-PVVR
     Indication: Rheumatoid arthritis
     Dosage: 1000 MG WEEK 0 AND WEEK 2
     Route: 042
     Dates: start: 20201110, end: 20201130
  2. RUXIENCE [Suspect]
     Active Substance: RITUXIMAB-PVVR
     Dosage: 1000 MG, WEEK 0 AND WEEK 2
     Route: 042
     Dates: start: 20210518, end: 20210601
  3. RUXIENCE [Suspect]
     Active Substance: RITUXIMAB-PVVR
     Dosage: 1000 MG, WEEK 0 AND WEEK 2
     Route: 042
     Dates: start: 20211203
  4. RUXIENCE [Suspect]
     Active Substance: RITUXIMAB-PVVR
     Dosage: 1000 MG, WEEK 0 AND WEEK 2
     Route: 042
     Dates: start: 20211221, end: 20211221

REACTIONS (3)
  - Death [Fatal]
  - Atrial fibrillation [Unknown]
  - Asthenia [Not Recovered/Not Resolved]

NARRATIVE: CASE EVENT DATE: 20210101
